FAERS Safety Report 11061292 (Version 1)
Quarter: 2015Q2

REPORT INFORMATION
  Report Type: Spontaneous
  Country: US (occurrence: None)
  Receive Date: 20150423
  Receipt Date: 20150423
  Transmission Date: 20150821
  Serious: Yes (Life-Threatening, Disabling, Other)
  Sender: FDA-Public Use
  Company Number: None

PATIENT
  Age: 37 Year
  Sex: Female
  Weight: 63.5 kg

DRUGS (10)
  1. SODIUM NAPROXEN [Concomitant]
  2. FLONASE [Concomitant]
     Active Substance: FLUTICASONE PROPIONATE
  3. KLONOPIN [Concomitant]
     Active Substance: CLONAZEPAM
  4. ASPIRIN. [Concomitant]
     Active Substance: ASPIRIN
  5. BOTOX [Suspect]
     Active Substance: ONABOTULINUMTOXINA
     Indication: SKIN WRINKLING
     Route: 030
     Dates: start: 20041220
  6. FLEXERIL [Concomitant]
     Active Substance: CYCLOBENZAPRINE HYDROCHLORIDE
  7. VITAMIN C [Concomitant]
     Active Substance: ASCORBIC ACID
  8. SALINE [Suspect]
     Active Substance: SODIUM CHLORIDE
     Indication: BREAST PROSTHESIS IMPLANTATION
     Dosage: 350/325
     Dates: start: 20041220
  9. GNC BE-WHOLESOME VITAMINS [Concomitant]
  10. ACETAMINOPHEN. [Concomitant]
     Active Substance: ACETAMINOPHEN

REACTIONS (7)
  - Mastitis [None]
  - Gastric disorder [None]
  - Feeding disorder [None]
  - Speech disorder [None]
  - Intervertebral disc protrusion [None]
  - Injection site irritation [None]
  - Tendon disorder [None]

NARRATIVE: CASE EVENT DATE: 20041121
